FAERS Safety Report 21884355 (Version 1)
Quarter: 2023Q1

REPORT INFORMATION
  Report Type: Spontaneous
  Country: CA (occurrence: CA)
  Receive Date: 20230119
  Receipt Date: 20230119
  Transmission Date: 20230418
  Serious: Yes (Disabling)
  Sender: FDA-Public Use
  Company Number: CA-002147023-NVSC2023CA011475

PATIENT
  Age: 25 Year
  Sex: Female
  Weight: 45.805 kg

DRUGS (1)
  1. CLARITHROMYCIN [Suspect]
     Active Substance: CLARITHROMYCIN
     Indication: Sinusitis
     Dosage: 500 MG, BID
     Route: 048

REACTIONS (2)
  - Akathisia [Recovering/Resolving]
  - Psychomotor hyperactivity [Recovering/Resolving]
